FAERS Safety Report 7039156-3 (Version None)
Quarter: 2010Q4

REPORT INFORMATION
  Report Type: 
  Country: None (occurrence: None)
  Receive Date: 20101012
  Receipt Date: 20100930
  Transmission Date: 20110411
  Serious: Yes (Other)
  Sender: FDA-Public Use
  Company Number: PHHY2010MX65278

PATIENT
  Sex: Female

DRUGS (7)
  1. ACLASTA [Suspect]
     Indication: OSTEOPOROSIS
     Dosage: 5 MG/100 ML ONCE PER YEAR
     Route: 042
     Dates: start: 20100929
  2. AROPAX [Concomitant]
     Indication: DEPRESSION
     Dosage: 200 MG, UNK
     Dates: start: 20100401
  3. ARCOXIA [Concomitant]
     Indication: ARTHRITIS
     Dosage: 90 MG, QD
     Dates: start: 20090101
  4. METHOTREXATE [Concomitant]
     Indication: ARTHRITIS
     Dosage: UNK
     Dates: start: 20090101
  5. DORIXINA [Concomitant]
     Indication: ARTHRALGIA
     Dosage: UNK
     Dates: start: 20090101
  6. PARACETAMOL [Concomitant]
     Indication: PROPHYLAXIS
     Dosage: UNK
  7. OMEPRAZOLE [Concomitant]
     Indication: GASTRITIS
     Dosage: 20 MG, QD

REACTIONS (5)
  - CHEST PAIN [None]
  - DIZZINESS [None]
  - DYSPNOEA [None]
  - HYPERHIDROSIS [None]
  - PALLOR [None]
